FAERS Safety Report 4784684-4 (Version None)
Quarter: 2005Q3

REPORT INFORMATION
  Report Type: 
  Country: None (occurrence: None)
  Receive Date: 20050929
  Receipt Date: 20050929
  Transmission Date: 20060218
  Serious: Yes (Death)
  Sender: FDA-Public Use
  Company Number: None

PATIENT
  Sex: Male
  Weight: 92.9874 kg

DRUGS (12)
  1. JANTOVEN [Suspect]
     Indication: DEEP VEIN THROMBOSIS
  2. JANTOVEN [Suspect]
     Indication: CEREBRAL THROMBOSIS
  3. CLARITIN [Concomitant]
  4. DESYREL [Concomitant]
  5. BUMEX [Concomitant]
  6. LEXAPRO [Concomitant]
  7. DULCOLAX [Concomitant]
  8. PREVACID [Concomitant]
  9. CELEBREX [Concomitant]
  10. SEROQUEL [Concomitant]
  11. TENORMIN [Concomitant]
  12. DEPAKOTE [Concomitant]

REACTIONS (2)
  - INTERNATIONAL NORMALISED RATIO FLUCTUATION [None]
  - PHARMACEUTICAL PRODUCT COMPLAINT [None]
